FAERS Safety Report 9097816 (Version 2)
Quarter: 2013Q1

REPORT INFORMATION
  Report Type: Spontaneous
  Country: IT (occurrence: IT)
  Receive Date: 20130212
  Receipt Date: 20130327
  Transmission Date: 20140127
  Serious: Yes (Hospitalization)
  Sender: FDA-Public Use
  Company Number: IT-ROCHE-1189991

PATIENT
  Age: 15 Year
  Sex: Male

DRUGS (4)
  1. ROCEFIN [Suspect]
     Indication: PHARYNGOTONSILLITIS
     Route: 030
     Dates: start: 20121122, end: 20121123
  2. AMOXICILLIN SODIUM/CLAVULANATE POTASSIUM [Suspect]
     Indication: PHARYNGOTONSILLITIS
     Route: 048
     Dates: start: 20121117, end: 20121120
  3. CLARITHROMYCIN [Suspect]
     Indication: PHARYNGOTONSILLITIS
     Route: 048
     Dates: start: 20111121, end: 20111121
  4. PARACETAMOL [Concomitant]
     Route: 048

REACTIONS (1)
  - Rash maculo-papular [Recovered/Resolved]
